FAERS Safety Report 23301832 (Version 1)
Quarter: 2023Q4

REPORT INFORMATION
  Report Type: Spontaneous
  Country: JP (occurrence: JP)
  Receive Date: 20231215
  Receipt Date: 20231215
  Transmission Date: 20240109
  Serious: Yes (Other)
  Sender: FDA-Public Use
  Company Number: JP-Eisai-202307114_LEN-EC_P_1

PATIENT
  Age: 77 Year
  Sex: Female

DRUGS (3)
  1. LENVIMA [Suspect]
     Active Substance: LENVATINIB
     Indication: Endometrial cancer
     Dosage: DOSAGE UNKNOWN
     Route: 048
     Dates: start: 202301, end: 202302
  2. KEYTRUDA [Concomitant]
     Active Substance: PEMBROLIZUMAB
     Indication: Endometrial cancer
     Route: 041
     Dates: start: 202301, end: 202302
  3. KEYTRUDA [Concomitant]
     Active Substance: PEMBROLIZUMAB
     Route: 041

REACTIONS (2)
  - Neuropathy peripheral [Unknown]
  - Diarrhoea [Unknown]

NARRATIVE: CASE EVENT DATE: 20230201
